FAERS Safety Report 10100894 (Version 3)
Quarter: 2014Q2

REPORT INFORMATION
  Report Type: Report from Study
  Country: AT (occurrence: AT)
  Receive Date: 20140423
  Receipt Date: 20140520
  Transmission Date: 20141212
  Serious: Yes (Hospitalization)
  Sender: FDA-Public Use
  Company Number: AT-ONYX-2014-0866

PATIENT
  Age: 78 Year
  Sex: Female
  Weight: 75.9 kg

DRUGS (23)
  1. CARFILZOMIB [Suspect]
     Indication: PLASMA CELL MYELOMA
     Route: 042
     Dates: start: 20131220, end: 20131221
  2. CARFILZOMIB [Suspect]
     Route: 042
     Dates: start: 20131227, end: 20140118
  3. CARFILZOMIB [Suspect]
     Route: 042
     Dates: start: 20140203
  4. MELPHALAN [Suspect]
     Indication: PLASMA CELL MYELOMA
     Route: 048
     Dates: start: 20131220
  5. PREDNISONE [Suspect]
     Indication: PLASMA CELL MYELOMA
     Route: 048
     Dates: start: 20131220
  6. THROMBO ASS [Concomitant]
     Indication: HYPERTENSION
     Route: 048
     Dates: start: 2006
  7. PANTOLOC [Concomitant]
     Indication: GASTRIC DISORDER
     Route: 048
     Dates: start: 201312
  8. LAEVOLAC [Concomitant]
     Indication: CONSTIPATION
     Route: 048
     Dates: start: 201312
  9. JODTHYROX [Concomitant]
     Indication: HYPOTHYROIDISM
     Route: 048
     Dates: start: 201008
  10. SEROQUEL [Concomitant]
     Indication: ANTIDEPRESSANT DRUG LEVEL
     Route: 048
     Dates: start: 201312
  11. TRITTICO [Concomitant]
     Indication: ANTIDEPRESSANT THERAPY
     Route: 048
     Dates: start: 201312
  12. CAL-D-VITA [Concomitant]
     Indication: OSTEOPOROSIS PROPHYLAXIS
     Route: 048
     Dates: start: 201312
  13. VALTREX [Concomitant]
     Indication: PREMEDICATION
     Route: 048
     Dates: start: 20131220
  14. LOVENOX [Concomitant]
     Indication: THROMBOPHLEBITIS
     Route: 058
     Dates: start: 20140121
  15. ZOMETA [Concomitant]
     Indication: OSTEOPOROSIS PROPHYLAXIS
     Route: 058
     Dates: start: 20131220
  16. GLANDOMED [Concomitant]
     Indication: PROPHYLAXIS
     Route: 048
     Dates: start: 20140111
  17. MYCOSTATIN [Concomitant]
     Indication: PROPHYLAXIS
     Route: 048
     Dates: start: 20140111
  18. MEXALEN [Concomitant]
     Indication: PAIN
     Route: 048
     Dates: start: 20131220
  19. NOVALGIN [Concomitant]
     Indication: PAIN
     Route: 048
     Dates: start: 20131220
  20. SIRDALUD [Concomitant]
     Indication: PAIN
     Route: 048
     Dates: start: 20131220
  21. ONDASAN [Concomitant]
     Indication: NAUSEA
     Route: 048
     Dates: start: 20131220
  22. PASPERTIN [Concomitant]
     Indication: NAUSEA
     Route: 048
     Dates: start: 20131220
  23. URIVESC [Concomitant]
     Indication: URINARY RETENTION
     Route: 048
     Dates: start: 20140325, end: 20140408

REACTIONS (1)
  - Hypertensive crisis [Recovered/Resolved]
